FAERS Safety Report 19720893 (Version 1)
Quarter: 2021Q3

REPORT INFORMATION
  Report Type: Spontaneous
  Country: US (occurrence: US)
  Receive Date: 20210818
  Receipt Date: 20210818
  Transmission Date: 20211014
  Serious: No
  Sender: FDA-Public Use
  Company Number: None

PATIENT
  Age: 65 Year
  Sex: Female

DRUGS (1)
  1. REVLIMID [Suspect]
     Active Substance: LENALIDOMIDE
     Indication: PLASMA CELL MYELOMA
     Route: 048
     Dates: start: 20140828

REACTIONS (4)
  - Monoclonal immunoglobulin increased [None]
  - Light chain analysis increased [None]
  - Monoclonal gammopathy [None]
  - Diarrhoea [None]

NARRATIVE: CASE EVENT DATE: 20210720
